FAERS Safety Report 19176186 (Version 1)
Quarter: 2021Q2

REPORT INFORMATION
  Report Type: Spontaneous
  Country: US (occurrence: US)
  Receive Date: 20210423
  Receipt Date: 20210423
  Transmission Date: 20210717
  Serious: No
  Sender: FDA-Public Use
  Company Number: US-SEAGEN-2021SGN00358

PATIENT
  Age: 39 Year
  Sex: Male

DRUGS (3)
  1. TRASTUZUMAB. [Suspect]
     Active Substance: TRASTUZUMAB
     Indication: OESOPHAGEAL CANCER METASTATIC
     Dosage: UNK
     Dates: start: 202011
  2. CAPECITABINE. [Suspect]
     Active Substance: CAPECITABINE
     Indication: OESOPHAGEAL CANCER METASTATIC
     Dosage: UNK
     Dates: start: 202011
  3. TUKYSA [Suspect]
     Active Substance: TUCATINIB
     Indication: OESOPHAGEAL CANCER METASTATIC
     Dosage: UNK
     Dates: start: 202011

REACTIONS (1)
  - Off label use [Unknown]
